FAERS Safety Report 6986113-9 (Version None)
Quarter: 2010Q3

REPORT INFORMATION
  Report Type: 
  Country: None (occurrence: None)
  Receive Date: 20100910
  Receipt Date: 20100901
  Transmission Date: 20110219
  Serious: Yes (Other)
  Sender: FDA-Public Use
  Company Number: 2010US003552

PATIENT
  Age: 34 Year
  Sex: Male

DRUGS (4)
  1. PROGRAF [Suspect]
     Indication: RENAL TRANSPLANT
  2. BASILIXIMAB (BASILIXIMAB) [Concomitant]
  3. MYCOPHENOLATE SODIUM [Concomitant]
  4. CORTICOSTEROID NOS [Concomitant]

REACTIONS (6)
  - DRUG INTOLERANCE [None]
  - FOCAL SEGMENTAL GLOMERULOSCLEROSIS [None]
  - GASTROINTESTINAL DISORDER [None]
  - KIDNEY TRANSPLANT REJECTION [None]
  - NEPHROTIC SYNDROME [None]
  - RENAL TUBULAR NECROSIS [None]
